FAERS Safety Report 24759272 (Version 1)
Quarter: 2024Q4

REPORT INFORMATION
  Report Type: Spontaneous
  Country: US (occurrence: None)
  Receive Date: 20241219
  Receipt Date: 20241219
  Transmission Date: 20250114
  Serious: Yes (Life-Threatening, Hospitalization)
  Sender: Public
  Company Number: None

PATIENT
  Age: 74 Year
  Sex: Female
  Weight: 87 kg

DRUGS (1)
  1. GEMCITABINE [Suspect]
     Active Substance: GEMCITABINE
     Indication: Non-small cell lung cancer
     Dosage: OTHER FREQUENCY : DAYS 1,8 PER CYCLE;?
     Route: 042
     Dates: start: 20240411, end: 20241008

REACTIONS (8)
  - Blood pressure increased [None]
  - Disorganised speech [None]
  - Neglect of personal appearance [None]
  - Unresponsive to stimuli [None]
  - Headache [None]
  - Muscular weakness [None]
  - Fluid retention [None]
  - Posterior reversible encephalopathy syndrome [None]

NARRATIVE: CASE EVENT DATE: 20241023
